FAERS Safety Report 9731336 (Version 2)
Quarter: 2013Q4

REPORT INFORMATION
  Report Type: Spontaneous
  Country: US (occurrence: US)
  Receive Date: 20131205
  Receipt Date: 20131209
  Transmission Date: 20140711
  Serious: No
  Sender: FDA-Public Use
  Company Number: US-RB-060446-13

PATIENT
  Sex: Male

DRUGS (1)
  1. MUCINEX MAXIMUM STRENGTH [Suspect]
     Indication: COUGH
     Dosage: 1 AT MORNING AND 1 AT NIGHT, DAILY. PATIENT USED THE PRODUCT FOR ABOUT 3 WEEKS
     Route: 048

REACTIONS (2)
  - Dizziness [Not Recovered/Not Resolved]
  - Incorrect drug administration duration [Not Recovered/Not Resolved]
